FAERS Safety Report 5674663-7 (Version None)
Quarter: 2008Q1

REPORT INFORMATION
  Report Type: 
  Country: None (occurrence: None)
  Receive Date: 20080320
  Receipt Date: 20080317
  Transmission Date: 20080703
  Serious: Yes (Other)
  Sender: FDA-Public Use
  Company Number: A0715786A

PATIENT
  Sex: Female

DRUGS (5)
  1. ADVAIR DISKUS 100/50 [Suspect]
     Indication: ASTHMA
     Route: 055
     Dates: start: 20060101
  2. DIOVAN [Concomitant]
  3. LEVOTHROID [Concomitant]
  4. UNSPECIFIED MEDICATION [Concomitant]
  5. UNSPECIFIED MEDICATION [Concomitant]

REACTIONS (3)
  - ASTHMA [None]
  - LACRIMATION INCREASED [None]
  - VISION BLURRED [None]
